FAERS Safety Report 8267369-1 (Version None)
Quarter: 2012Q2

REPORT INFORMATION
  Report Type: 
  Country: None (occurrence: None)
  Receive Date: 20120409
  Receipt Date: 20120327
  Transmission Date: 20120825
  Serious: Yes (Hospitalization, Other)
  Sender: FDA-Public Use
  Company Number: PHHY2012JP002526

PATIENT
  Sex: Female

DRUGS (15)
  1. MUCOSTA [Concomitant]
     Indication: SCHIZOPHRENIA, PARANOID TYPE
     Dosage: 300 MG, UNK
     Route: 048
     Dates: start: 20110814, end: 20120106
  2. TASMOLIN [Concomitant]
     Indication: SCHIZOPHRENIA, PARANOID TYPE
     Dosage: 2 MG, UNK
     Route: 048
     Dates: start: 20120106
  3. ZOTEPINE [Concomitant]
     Dosage: 100 MG, UNK
     Route: 048
     Dates: start: 20110915
  4. ZOTEPINE [Concomitant]
     Dosage: 50 MG, UNK
     Route: 048
     Dates: end: 20111102
  5. FLUNITRAZEPAM [Concomitant]
     Indication: SCHIZOPHRENIA, PARANOID TYPE
     Dosage: 2 MG, UNK
     Route: 048
     Dates: start: 20110807, end: 20120106
  6. DIAZEPAM [Concomitant]
     Dosage: 6 MG, UNK
     Route: 048
     Dates: start: 20111027, end: 20120106
  7. RISPERIDONE [Concomitant]
     Dosage: 4 MG, UNK
     Route: 048
     Dates: end: 20111019
  8. ZOTEPINE [Concomitant]
     Dosage: 75 MG, UNK
     Route: 048
  9. TASMOLIN [Concomitant]
     Dosage: 3 MG, UNK
     Route: 048
     Dates: end: 20120106
  10. CLOZARIL [Suspect]
     Indication: SCHIZOPHRENIA
     Route: 048
     Dates: start: 20110915, end: 20120107
  11. RISPERIDONE [Concomitant]
     Dosage: 8 MG, UNK
     Route: 048
     Dates: start: 20110915
  12. RISPERIDONE [Concomitant]
     Dosage: 6 MG, UNK
     Route: 048
  13. HALOPERIDOL [Concomitant]
     Dates: start: 20120106
  14. NIZATIDINE [Concomitant]
     Indication: SCHIZOPHRENIA, PARANOID TYPE
     Dosage: 150 MG, UNK
     Route: 048
     Dates: start: 20110814, end: 20120106
  15. PRIMPERAN TAB [Concomitant]
     Indication: SCHIZOPHRENIA, PARANOID TYPE
     Dosage: 15 MG, UNK
     Route: 048
     Dates: start: 20110814, end: 20120106

REACTIONS (9)
  - PORIOMANIA [None]
  - WHITE BLOOD CELL COUNT INCREASED [None]
  - VOMITING [None]
  - PNEUMONIA ASPIRATION [None]
  - MENTAL DISORDER [None]
  - SOLILOQUY [None]
  - LOSS OF CONSCIOUSNESS [None]
  - RESPIRATORY FAILURE [None]
  - OXYGEN SATURATION DECREASED [None]
